FAERS Safety Report 5142339-0 (Version None)
Quarter: 2006Q4

REPORT INFORMATION
  Report Type: 
  Country: None (occurrence: None)
  Receive Date: 20061102
  Receipt Date: 20061004
  Transmission Date: 20070319
  Serious: Yes (Life-Threatening, Hospitalization, Other)
  Sender: FDA-Public Use
  Company Number: US-GLAXOSMITHKLINE-A0622630A

PATIENT
  Age: 48 Year
  Sex: Female
  Weight: 77.7 kg

DRUGS (2)
  1. IMITREX [Suspect]
     Indication: DRUG USE FOR UNKNOWN INDICATION
     Dosage: 100MG SINGLE DOSE
     Route: 048
     Dates: start: 20060828, end: 20060828
  2. NO CONCURRENT MEDICATION [Concomitant]

REACTIONS (8)
  - ARTERIOSPASM CORONARY [None]
  - CHEST DISCOMFORT [None]
  - CHEST PAIN [None]
  - CORONARY ARTERY OCCLUSION [None]
  - DYSPNOEA [None]
  - FATIGUE [None]
  - MYOCARDIAL INFARCTION [None]
  - PAIN IN EXTREMITY [None]
